FAERS Safety Report 8762553 (Version 1)
Quarter: 2012Q4

REPORT INFORMATION
  Report Type: 
  Country: US (occurrence: US)
  Receive Date: 20120828
  Receipt Date: 20120828
  Transmission Date: 20130627
  Serious: Yes (Hospitalization, Other)
  Sender: FDA-Public Use
  Company Number: US-PFIZER INC-2012208026

PATIENT
  Age: 54 Year
  Sex: Male
  Weight: 83.9 kg

DRUGS (7)
  1. ENBREL [Suspect]
     Indication: RHEUMATOID ARTHRITIS
     Dosage: 50 mg, every 2 weeks
     Dates: end: 201208
  2. ZYVOX [Suspect]
     Indication: INJECTION SITE INFECTION
     Dosage: 2x/day
     Dates: start: 201208, end: 201208
  3. METHOTREXATE [Concomitant]
     Indication: RHEUMATOID ARTHRITIS
     Dosage: 35 mg, weekly
  4. SINGULAIR [Concomitant]
     Indication: HYPERSENSITIVITY
     Dosage: UNK, daily
  5. PROTONIX [Concomitant]
     Indication: GASTROOESOPHAGEAL REFLUX DISEASE
     Dosage: 40 mg, daily
  6. PROVIGIL [Concomitant]
     Indication: NARCOLEPSY
     Dosage: 200 mg, as needed
  7. CARDURA [Concomitant]
     Indication: PROSTATIC DISORDER
     Dosage: 8 mg, daily
     Route: 048

REACTIONS (7)
  - Injection site infection [Recovered/Resolved]
  - Haemoglobin abnormal [Unknown]
  - Pruritus generalised [Recovering/Resolving]
  - Skin exfoliation [Unknown]
  - Oedema peripheral [Unknown]
  - Pain in extremity [Unknown]
  - Erythema [Unknown]
